FAERS Safety Report 9682014 (Version 1)
Quarter: 2013Q4

REPORT INFORMATION
  Report Type: Report from Study
  Country: DE (occurrence: DE)
  Receive Date: 20131111
  Receipt Date: 20131111
  Transmission Date: 20140711
  Serious: Yes (Death)
  Sender: FDA-Public Use
  Company Number: DE-ABBVIE-13P-062-1167498-00

PATIENT
  Age: 65 Year
  Sex: Female
  Weight: 40 kg

DRUGS (1)
  1. ZEMPLAR [Suspect]
     Indication: PRODUCT USED FOR UNKNOWN INDICATION
     Dates: end: 20130208

REACTIONS (1)
  - Sudden cardiac death [Fatal]
